FAERS Safety Report 7263519-4 (Version None)
Quarter: 2011Q1

REPORT INFORMATION
  Report Type: 
  Country: None (occurrence: None)
  Receive Date: 20110130
  Receipt Date: 20101216
  Transmission Date: 20110831
  Serious: Yes (Hospitalization)
  Sender: FDA-Public Use
  Company Number: US-ABBOTT-10P-163-0691889-00

PATIENT
  Sex: Male
  Weight: 83.99 kg

DRUGS (16)
  1. COREG [Concomitant]
     Indication: HYPERTENSION
  2. MERCAPTOPURINE [Concomitant]
     Indication: PRODUCT USED FOR UNKNOWN INDICATION
  3. NEXIUM [Concomitant]
     Indication: REFLUX OESOPHAGITIS
  4. HUMIRA [Suspect]
     Indication: COLITIS ULCERATIVE
     Dates: start: 20090101
  5. POTASSIUM CHL TAB [Concomitant]
     Indication: SUPPLEMENTATION THERAPY
  6. ASACOL [Concomitant]
     Indication: COLITIS ULCERATIVE
  7. CELEBREX [Concomitant]
     Indication: ARTHRALGIA
  8. COUMADIN [Concomitant]
     Indication: THROMBOSIS PROPHYLAXIS
  9. CRESTOR [Concomitant]
     Indication: BLOOD CHOLESTEROL INCREASED
  10. COLCHICINE [Concomitant]
     Indication: GOUT
  11. FUROSEMIDE [Concomitant]
     Indication: HYPERTENSION
  12. DIOVAN [Concomitant]
     Indication: HYPERTENSION
  13. DICYCLOMINE [Concomitant]
     Indication: COLITIS ULCERATIVE
  14. NORTRIPTYLINE [Concomitant]
     Indication: DEPRESSION
  15. CELEBREX [Concomitant]
     Indication: INFLAMMATION
  16. PREDNISONE [Concomitant]
     Indication: COLITIS ULCERATIVE

REACTIONS (1)
  - KNEE ARTHROPLASTY [None]
